FAERS Safety Report 13820167 (Version 3)
Quarter: 2017Q3

REPORT INFORMATION
  Report Type: Spontaneous
  Country: RU (occurrence: RU)
  Receive Date: 20170801
  Receipt Date: 20170811
  Transmission Date: 20171127
  Serious: Yes (Death, Life-Threatening)
  Sender: FDA-Public Use
  Company Number: RU-ABBVIE-17P-251-2054927-00

PATIENT
  Age: 5 Year
  Sex: Male

DRUGS (7)
  1. LYSTHENON [Suspect]
     Active Substance: SUCCINYLCHOLINE CHLORIDE
     Indication: NEUROMUSCULAR BLOCKING THERAPY
     Route: 042
     Dates: start: 20170723
  2. PROPOFOL. [Suspect]
     Active Substance: PROPOFOL
     Indication: GENERAL ANAESTHESIA
     Route: 042
     Dates: start: 20170723
  3. PROPOFOL. [Suspect]
     Active Substance: PROPOFOL
     Indication: DENTAL CARIES
  4. SUPRASTIN [Concomitant]
     Active Substance: CHLOROPYRAMINE HYDROCHLORIDE
     Indication: GENERAL ANAESTHESIA
     Route: 042
     Dates: start: 20170723, end: 20170723
  5. SUPRASTIN [Concomitant]
     Active Substance: CHLOROPYRAMINE HYDROCHLORIDE
     Indication: DENTAL CARIES
  6. SEVORANE [Suspect]
     Active Substance: SEVOFLURANE
     Indication: GENERAL ANAESTHESIA
     Route: 055
     Dates: start: 20170723
  7. SEVORANE [Suspect]
     Active Substance: SEVOFLURANE
     Indication: DENTAL CARIES

REACTIONS (6)
  - Areflexia [Fatal]
  - Apnoea [Fatal]
  - Bradycardia [Fatal]
  - Mydriasis [Fatal]
  - Cardiac arrest [Fatal]
  - Hypersensitivity [Fatal]

NARRATIVE: CASE EVENT DATE: 20170723
